FAERS Safety Report 19780701 (Version 6)
Quarter: 2021Q4

REPORT INFORMATION
  Report Type: Report from Study
  Country: PA (occurrence: PA)
  Receive Date: 20210902
  Receipt Date: 20211215
  Transmission Date: 20220303
  Serious: Yes (Hospitalization, Other)
  Sender: FDA-Public Use
  Company Number: NVSC2021PA195923

PATIENT
  Age: 69 Year
  Sex: Female
  Weight: 55 kg

DRUGS (2)
  1. KISQALI [Suspect]
     Active Substance: RIBOCICLIB
     Indication: Breast cancer metastatic
     Dosage: 600 MG, QD (3 TABLETS) (AFTER LUNCH)
     Route: 048
     Dates: start: 201907, end: 20211203
  2. FULVESTRANT [Suspect]
     Active Substance: FULVESTRANT
     Indication: Breast cancer metastatic
     Dosage: UNK (INJECTION) (ON THE 03 SEP (YEAR UNSPECIFIED))
     Route: 065

REACTIONS (25)
  - Feeling abnormal [Unknown]
  - Breast pain [Unknown]
  - Breast haemorrhage [Unknown]
  - Bone pain [Unknown]
  - Malignant neoplasm progression [Unknown]
  - Breast cancer metastatic [Unknown]
  - Pigmentation disorder [Recovered/Resolved]
  - Radiation injury [Unknown]
  - Skin burning sensation [Unknown]
  - Pain [Unknown]
  - Spinal pain [Unknown]
  - Arthralgia [Unknown]
  - Crying [Unknown]
  - Skin odour abnormal [Unknown]
  - Photosensitivity reaction [Unknown]
  - Sleep disorder [Unknown]
  - Skin exfoliation [Recovered/Resolved]
  - Synovial cyst [Unknown]
  - Feeling hot [Unknown]
  - Back pain [Unknown]
  - Decreased appetite [Unknown]
  - Blister [Recovering/Resolving]
  - Peripheral swelling [Unknown]
  - Pruritus [Unknown]
  - Drug ineffective [Unknown]

NARRATIVE: CASE EVENT DATE: 20210916
